FAERS Safety Report 11164789 (Version 1)
Quarter: 2015Q2

REPORT INFORMATION
  Report Type: Spontaneous
  Country: US (occurrence: US)
  Receive Date: 20150604
  Receipt Date: 20150604
  Transmission Date: 20150821
  Serious: Yes (Other)
  Sender: FDA-Public Use
  Company Number: US-TEVA-567809USA

PATIENT
  Age: 67 Year
  Sex: Male

DRUGS (3)
  1. METFORMIN [Concomitant]
     Active Substance: METFORMIN HYDROCHLORIDE
     Indication: HYPERGLYCAEMIA
     Route: 065
  2. ISONIAZID. [Interacting]
     Active Substance: ISONIAZID
     Indication: LATENT TUBERCULOSIS
     Route: 065
  3. GLIPIZIDE. [Suspect]
     Active Substance: GLIPIZIDE
     Indication: HYPERGLYCAEMIA
     Route: 065

REACTIONS (2)
  - Drug interaction [Recovered/Resolved]
  - Hyperglycaemia [Recovered/Resolved]
